FAERS Safety Report 8052281-3 (Version None)
Quarter: 2012Q1

REPORT INFORMATION
  Report Type: 
  Country: None (occurrence: None)
  Receive Date: 20120112
  Receipt Date: 20111227
  Transmission Date: 20120608
  Serious: Yes (Death, Hospitalization)
  Sender: FDA-Public Use
  Company Number: IMP_05514_2012

PATIENT
  Age: 24 Year
  Sex: Female

DRUGS (1)
  1. METFORMIN HYDROCHLORIDE [Suspect]
     Indication: PRODUCT USED FOR UNKNOWN INDICATION
     Dosage: (DF ORAL)
     Route: 048

REACTIONS (18)
  - ABDOMINAL DISCOMFORT [None]
  - LABORATORY TEST ABNORMAL [None]
  - BLOOD LACTIC ACID INCREASED [None]
  - ACIDOSIS [None]
  - MENTAL IMPAIRMENT [None]
  - VOMITING [None]
  - BLOOD GLUCOSE DECREASED [None]
  - BLOOD CHLORIDE INCREASED [None]
  - HEART RATE INCREASED [None]
  - BODY TEMPERATURE DECREASED [None]
  - HYPOTENSION [None]
  - HAEMODIALYSIS [None]
  - POISONING [None]
  - BLOOD PH DECREASED [None]
  - BLOOD PRESSURE DIASTOLIC DECREASED [None]
  - COMPLETED SUICIDE [None]
  - DEHYDRATION [None]
  - BLOOD BICARBONATE DECREASED [None]
